FAERS Safety Report 25213323 (Version 1)
Quarter: 2025Q2

REPORT INFORMATION
  Report Type: Spontaneous
  Country: US (occurrence: US)
  Receive Date: 20250418
  Receipt Date: 20250418
  Transmission Date: 20250717
  Serious: Yes (Other)
  Sender: PFIZER
  Company Number: US-PFIZER INC-202500076239

PATIENT
  Sex: Female

DRUGS (1)
  1. TALAZOPARIB [Suspect]
     Active Substance: TALAZOPARIB

REACTIONS (6)
  - Cholecystectomy [Unknown]
  - Nausea [Unknown]
  - Diarrhoea [Unknown]
  - Brain fog [Unknown]
  - Memory impairment [Unknown]
  - Fatigue [Unknown]
